FAERS Safety Report 6646029-4 (Version None)
Quarter: 2010Q1

REPORT INFORMATION
  Report Type: 
  Country: None (occurrence: None)
  Receive Date: 20100323
  Receipt Date: 20100311
  Transmission Date: 20100710
  Serious: Yes (Hospitalization, Other)
  Sender: FDA-Public Use
  Company Number: JP-PFIZER INC-2010023252

PATIENT
  Age: 37 Year
  Sex: Female
  Weight: 48 kg

DRUGS (3)
  1. CHAMPIX [Suspect]
     Indication: SMOKING CESSATION THERAPY
     Dosage: UNK
     Route: 048
     Dates: start: 20091201, end: 20091201
  2. CHAMPIX [Suspect]
     Dosage: 1 MG, 2X/DAY
     Dates: start: 20091201, end: 20100209
  3. RIZE [Concomitant]
     Indication: AGITATION
     Dosage: 5 MG, 3X/DAY
     Route: 048
     Dates: start: 20090801, end: 20100210

REACTIONS (6)
  - AGITATION [None]
  - ANXIETY [None]
  - HALLUCINATION, AUDITORY [None]
  - INSOMNIA [None]
  - PERSECUTORY DELUSION [None]
  - PSYCHOMOTOR HYPERACTIVITY [None]
